FAERS Safety Report 5097831-4 (Version None)
Quarter: 2006Q3

REPORT INFORMATION
  Report Type: 
  Country: None (occurrence: None)
  Receive Date: 20060905
  Receipt Date: 20060822
  Transmission Date: 20061208
  Serious: Yes (Other)
  Sender: FDA-Public Use
  Company Number: CLOF-10286

PATIENT
  Age: 62 Year
  Sex: Male

DRUGS (8)
  1. CLOFARABINE [Suspect]
     Indication: CHRONIC MYELOMONOCYTIC LEUKAEMIA
     Dosage: 78 MG QD X 5 IV
     Route: 042
     Dates: start: 20060609, end: 20060613
  2. CLOFARABINE [Suspect]
     Indication: MYELODYSPLASTIC SYNDROME
     Dosage: 78 MG QD X 5 IV
     Route: 042
     Dates: start: 20060609, end: 20060613
  3. ALLOPURINOL [Concomitant]
  4. CEFEPIME [Concomitant]
  5. LEVAQUIN [Concomitant]
  6. VANCOMYCIN [Concomitant]
  7. AZTREONAM [Concomitant]
  8. VORICONAZOLE [Concomitant]

REACTIONS (3)
  - ASCITES [None]
  - DIALYSIS [None]
  - RENAL FAILURE [None]
